FAERS Safety Report 13598710 (Version 1)
Quarter: 2017Q2

REPORT INFORMATION
  Report Type: Spontaneous
  Country: US (occurrence: US)
  Receive Date: 20170531
  Receipt Date: 20170531
  Transmission Date: 20170830
  Serious: Yes (Other)
  Sender: FDA-Public Use
  Company Number: None

PATIENT
  Age: 79 Year
  Sex: Female

DRUGS (12)
  1. ALBUTEROL. [Concomitant]
     Active Substance: ALBUTEROL
  2. CETIRIZINE [Concomitant]
     Active Substance: CETIRIZINE HYDROCHLORIDE
  3. LENALIDOMIDE [Concomitant]
     Active Substance: LENALIDOMIDE
  4. POTASSIUM CHLORIDE. [Concomitant]
     Active Substance: POTASSIUM CHLORIDE
  5. FUROSEMIDE. [Concomitant]
     Active Substance: FUROSEMIDE
  6. SIMVASTATIN. [Concomitant]
     Active Substance: SIMVASTATIN
  7. METOPROLOL TARTRATE. [Concomitant]
     Active Substance: METOPROLOL TARTRATE
  8. DIGOXIN. [Concomitant]
     Active Substance: DIGOXIN
  9. DEXAMETHASONE. [Concomitant]
     Active Substance: DEXAMETHASONE
  10. REVLIMID [Suspect]
     Active Substance: LENALIDOMIDE
     Indication: PLASMA CELL MYELOMA
     Dosage: 5MG DAILY X 21D/28D ORAL
     Route: 048
     Dates: start: 20170316
  11. CITALOPRAM [Concomitant]
     Active Substance: CITALOPRAM HYDROBROMIDE
  12. BECLOMETHASONE DIPROPIONATE [Concomitant]
     Active Substance: BECLOMETHASONE DIPROPIONATE

REACTIONS (5)
  - Prothrombin time abnormal [None]
  - Peripheral swelling [None]
  - Deep vein thrombosis [None]
  - Pain in extremity [None]
  - International normalised ratio fluctuation [None]

NARRATIVE: CASE EVENT DATE: 20170515
